FAERS Safety Report 23159407 (Version 1)
Quarter: 2023Q4

REPORT INFORMATION
  Report Type: Spontaneous
  Country: US (occurrence: None)
  Receive Date: 20231107
  Receipt Date: 20231107
  Transmission Date: 20240110
  Serious: No
  Sender: FDA-Public Use
  Company Number: None

PATIENT
  Age: 73 Year
  Sex: Female
  Weight: 53.55 kg

DRUGS (8)
  1. BREO ELLIPTA [Suspect]
     Active Substance: FLUTICASONE FUROATE\VILANTEROL TRIFENATATE
     Indication: Asthma
     Dosage: OTHER QUANTITY : 1 INHALATION(S);?FREQUENCY : AT BEDTIME;?
     Route: 055
     Dates: start: 20231015, end: 20231101
  2. CALCIUM [Concomitant]
     Active Substance: CALCIUM
  3. SINGULAR10 [Concomitant]
  4. ADVAIR DISKUS [Concomitant]
     Active Substance: FLUTICASONE PROPIONATE\SALMETEROL XINAFOATE
  5. JWH-018 [Concomitant]
     Active Substance: JWH-018
  6. VITAMIN D3 [Concomitant]
     Active Substance: CHOLECALCIFEROL
  7. COLACE [Concomitant]
     Active Substance: DOCUSATE SODIUM
  8. SENOKOT [Concomitant]
     Active Substance: SENNOSIDES

REACTIONS (10)
  - Product substitution issue [None]
  - Arthralgia [None]
  - Asthenia [None]
  - Headache [None]
  - Sinusitis [None]
  - Nausea [None]
  - Vomiting [None]
  - Hypertension [None]
  - Ataxia [None]
  - Confusional state [None]

NARRATIVE: CASE EVENT DATE: 20231101
